FAERS Safety Report 23577044 (Version 8)
Quarter: 2025Q1

REPORT INFORMATION
  Report Type: Other
  Country: US (occurrence: US)
  Receive Date: 20240228
  Receipt Date: 20250218
  Transmission Date: 20250409
  Serious: No
  Sender: TRAVERE THERAPEUTICS
  Company Number: US-TRAVERE-2024TVT00181

PATIENT
  Age: 76 Year
  Sex: Female

DRUGS (7)
  1. FILSPARI [Suspect]
     Active Substance: SPARSENTAN
     Indication: IgA nephropathy
     Dosage: 1 TIME A DAY FOR DAYS 1-14
     Route: 048
     Dates: start: 20240206
  2. FILSPARI [Suspect]
     Active Substance: SPARSENTAN
     Indication: Haematuria
     Dosage: 2 TABLETS BY MOUTH 1 TIME A DAY ON DAYS 15-30.?EXPIRY DATE: 31-AUG-2024
     Route: 048
     Dates: start: 202402
  3. COVID-19 VACCINE NOS [Suspect]
     Active Substance: COVID-19 VACCINE
     Indication: COVID-19 immunisation
  4. ALLOPURINOL [Concomitant]
     Active Substance: ALLOPURINOL
  5. ATORVASTATIN CALCIUM [Concomitant]
     Active Substance: ATORVASTATIN CALCIUM
  6. ASPIRIN [Concomitant]
     Active Substance: ASPIRIN
  7. DAPAGLIFLOZIN [Concomitant]
     Active Substance: DAPAGLIFLOZIN

REACTIONS (13)
  - Rash papular [Unknown]
  - Nasopharyngitis [Unknown]
  - Headache [Unknown]
  - Ligament sprain [Unknown]
  - Nausea [Unknown]
  - Somnolence [Unknown]
  - Haemoglobin decreased [Unknown]
  - Fatigue [Unknown]
  - Cataract [Unknown]
  - Urinary tract infection [Unknown]
  - Chromaturia [Unknown]
  - Pain in extremity [Unknown]
  - Illness [Unknown]

NARRATIVE: CASE EVENT DATE: 20240206
